FAERS Safety Report 4467671-5 (Version None)
Quarter: 2004Q4

REPORT INFORMATION
  Report Type: 
  Country: None (occurrence: None)
  Receive Date: 20041005
  Receipt Date: 20040920
  Transmission Date: 20050328
  Serious: Yes (Death)
  Sender: FDA-Public Use
  Company Number: 2004S1002505

PATIENT
  Age: 80 Year
  Sex: Female
  Weight: 39.9165 kg

DRUGS (5)
  1. CLOZAPINE [Suspect]
     Dosage: 25 MG HS, ORAL
     Route: 048
     Dates: start: 20040517, end: 20040701
  2. CARBIDOPA MONOHYDRATE [Concomitant]
  3. CALCITONIN-SALMON [Concomitant]
  4. PHENAZOPYRIDINE HCL TAB [Concomitant]
  5. CARBIDOPA AND LEVODOPA [Concomitant]

REACTIONS (5)
  - ASTHENIA [None]
  - DYSPHAGIA [None]
  - MALAISE [None]
  - NAUSEA [None]
  - URINARY TRACT INFECTION [None]
